FAERS Safety Report 8208786-5 (Version None)
Quarter: 2012Q1

REPORT INFORMATION
  Report Type: 
  Country: None (occurrence: None)
  Receive Date: 20120314
  Receipt Date: 20120304
  Transmission Date: 20120608
  Serious: Yes (Hospitalization)
  Sender: FDA-Public Use
  Company Number: EG-ROCHE-1045348

PATIENT
  Age: 38 Year
  Sex: Female

DRUGS (4)
  1. CISPLATIN [Concomitant]
  2. AVASTIN [Suspect]
     Indication: BREAST CANCER METASTATIC
     Route: 041
  3. NAVELBINE [Concomitant]
  4. FLUOROURACIL [Concomitant]

REACTIONS (1)
  - LOSS OF CONSCIOUSNESS [None]
